FAERS Safety Report 10039859 (Version 2)
Quarter: 2014Q2

REPORT INFORMATION
  Report Type: Spontaneous
  Country: LT (occurrence: LT)
  Receive Date: 20140326
  Receipt Date: 20140404
  Transmission Date: 20141212
  Serious: Yes (Other)
  Sender: FDA-Public Use
  Company Number: LT-JNJFOC-20140309853

PATIENT
  Sex: Female

DRUGS (2)
  1. XEPLION [Suspect]
     Indication: SCHIZOPHRENIA
     Dosage: RIGHT DELTOID
     Route: 030
     Dates: start: 20131107, end: 20131125
  2. XEPLION [Suspect]
     Indication: SCHIZOPHRENIA
     Dosage: LEFT DELTOID
     Route: 030
     Dates: start: 20131125

REACTIONS (3)
  - Injection site induration [Unknown]
  - Injection site pruritus [Unknown]
  - Injection site extravasation [Unknown]
